FAERS Safety Report 9399776 (Version 2)
Quarter: 2013Q3

REPORT INFORMATION
  Report Type: Spontaneous
  Country: JP (occurrence: JP)
  Receive Date: 20130715
  Receipt Date: 20130730
  Transmission Date: 20140515
  Serious: Yes (Hospitalization, Other)
  Sender: FDA-Public Use
  Company Number: JP-ASTRAZENECA-2013SE50940

PATIENT
  Age: 23046 Day
  Sex: Female
  Weight: 64 kg

DRUGS (15)
  1. SEROQUEL [Suspect]
     Indication: INSOMNIA
     Route: 048
     Dates: start: 20120515, end: 20120517
  2. SEROQUEL [Suspect]
     Indication: INSOMNIA
     Route: 048
     Dates: start: 20120517, end: 20120525
  3. SEROQUEL [Suspect]
     Indication: INSOMNIA
     Route: 048
     Dates: start: 20120526, end: 20120526
  4. SEROQUEL [Suspect]
     Indication: INSOMNIA
     Route: 048
     Dates: start: 20120527, end: 20120831
  5. JZOLOFT [Suspect]
     Indication: BIPOLAR DISORDER
     Dosage: 25 MG QD
     Route: 048
     Dates: start: 20120412
  6. LEVOTHYROXINE [Concomitant]
     Indication: HYPOPITUITARISM
     Route: 048
     Dates: start: 2008
  7. HYDROCORTISONE [Concomitant]
     Indication: HYPOPITUITARISM
     Route: 048
     Dates: start: 2007
  8. HYDROCORTISONE [Concomitant]
     Indication: HYPOPITUITARISM
     Dates: start: 20120514, end: 20120516
  9. SOMATROPIN [Concomitant]
     Indication: HYPOPITUITARISM
     Dates: start: 2007
  10. TAKEPRON [Concomitant]
     Indication: PROPHYLAXIS
     Route: 048
     Dates: start: 20120519, end: 20120605
  11. LOXONIN [Concomitant]
     Indication: ANALGESIC THERAPY
     Route: 048
     Dates: start: 20120518, end: 20120531
  12. LOXONIN [Concomitant]
     Indication: PROCEDURAL PAIN
     Route: 048
     Dates: start: 20120518, end: 20120531
  13. SELBEX [Concomitant]
     Indication: PROCEDURAL PAIN
     Route: 048
     Dates: start: 20120518, end: 20120531
  14. CRAVIT [Concomitant]
     Indication: ENTEROCOLITIS
     Route: 048
     Dates: start: 20120527, end: 20120529
  15. CALONAL [Concomitant]
     Indication: PROCEDURAL PAIN
     Route: 048
     Dates: start: 20120519, end: 20120605

REACTIONS (3)
  - Hypoglycaemia [Recovered/Resolved]
  - Enterocolitis [Recovered/Resolved]
  - Off label use [Unknown]
